FAERS Safety Report 10431186 (Version 2)
Quarter: 2015Q2

REPORT INFORMATION
  Report Type: Spontaneous
  Country: US (occurrence: None)
  Receive Date: 20140815
  Receipt Date: 20150625
  Transmission Date: 20150821
  Serious: Yes (Hospitalization)
  Sender: FDA-Public Use
  Company Number: A-US2014-99305

PATIENT
  Age: 79 Year
  Sex: Male

DRUGS (2)
  1. OPSUMIT [Suspect]
     Active Substance: MACITENTAN
     Indication: PULMONARY HYPERTENSION
     Route: 048
     Dates: start: 20140504
  2. THEODUR (THEOPHYLLINE) [Concomitant]

REACTIONS (4)
  - Oedema peripheral [None]
  - Dyspnoea [None]
  - No therapeutic response [None]
  - Fluid retention [None]
